FAERS Safety Report 12289523 (Version 1)
Quarter: 2016Q2

REPORT INFORMATION
  Report Type: Spontaneous
  Country: US (occurrence: US)
  Receive Date: 20160421
  Receipt Date: 20160421
  Transmission Date: 20160815
  Serious: No
  Sender: FDA-Public Use
  Company Number: US-ALVOGEN-2016-ALVOGEN-021462

PATIENT
  Age: 83 Year
  Sex: Male
  Weight: 62.6 kg

DRUGS (1)
  1. TENORMIN [Suspect]
     Active Substance: ATENOLOL
     Indication: PRODUCT USED FOR UNKNOWN INDICATION
     Route: 048
     Dates: start: 20151231, end: 20160102

REACTIONS (5)
  - Intentional product use issue [Recovered/Resolved]
  - Head discomfort [Recovered/Resolved]
  - Product substitution issue [Unknown]
  - Limb discomfort [Recovered/Resolved]
  - Chest discomfort [Recovered/Resolved]

NARRATIVE: CASE EVENT DATE: 20151231
